FAERS Safety Report 4408778-8 (Version None)
Quarter: 2004Q3

REPORT INFORMATION
  Report Type: 
  Country: None (occurrence: None)
  Receive Date: 20040727
  Receipt Date: 20040408
  Transmission Date: 20050211
  Serious: No
  Sender: FDA-Public Use
  Company Number: US-GLAXOSMITHKLINE-A0506398A

PATIENT
  Sex: Female

DRUGS (6)
  1. LEXIVA [Suspect]
     Indication: HIV INFECTION
     Dosage: 700MG TWICE PER DAY
     Route: 048
     Dates: start: 20040318
  2. INSULIN [Concomitant]
  3. GLYBURIDE [Concomitant]
  4. UNSPECIFIED MEDICATION [Concomitant]
  5. AGENERASE [Concomitant]
  6. NORVASC [Concomitant]

REACTIONS (6)
  - BALANCE DISORDER [None]
  - DIARRHOEA [None]
  - FEELING ABNORMAL [None]
  - FLATULENCE [None]
  - MUSCLE CRAMP [None]
  - RASH [None]
